FAERS Safety Report 15928893 (Version 2)
Quarter: 2019Q2

REPORT INFORMATION
  Report Type: Spontaneous
  Country: US (occurrence: US)
  Receive Date: 20190206
  Receipt Date: 20190413
  Transmission Date: 20190711
  Serious: Yes (Death, Other)
  Sender: FDA-Public Use
  Company Number: US-ASTRAZENECA-2019SE10061

PATIENT

DRUGS (8)
  1. NEURONTIN [Concomitant]
     Active Substance: GABAPENTIN
  2. FLOVENT [Concomitant]
     Active Substance: FLUTICASONE PROPIONATE
  3. FOLIC ACID. [Concomitant]
     Active Substance: FOLIC ACID
  4. ALBUTEROL. [Concomitant]
     Active Substance: ALBUTEROL
  5. MIRALAX [Concomitant]
     Active Substance: POLYETHYLENE GLYCOL 3350
  6. AMBIEN [Concomitant]
     Active Substance: ZOLPIDEM TARTRATE
  7. METAMUCIL [Concomitant]
     Active Substance: PLANTAGO SEED
  8. PRILOSEC [Suspect]
     Active Substance: OMEPRAZOLE MAGNESIUM
     Route: 048
     Dates: start: 20101006

REACTIONS (6)
  - Chronic kidney disease [Unknown]
  - Renal failure [Unknown]
  - Death [Fatal]
  - Acute kidney injury [Unknown]
  - Rebound acid hypersecretion [Unknown]
  - Renal injury [Unknown]
